FAERS Safety Report 13906116 (Version 8)
Quarter: 2018Q3

REPORT INFORMATION
  Report Type: Spontaneous
  Country: US (occurrence: US)
  Receive Date: 20170825
  Receipt Date: 20180716
  Transmission Date: 20181010
  Serious: Yes (Other)
  Sender: FDA-Public Use
  Company Number: US-PFIZER INC-2017366860

PATIENT
  Age: 63 Year
  Sex: Female
  Weight: 102.58 kg

DRUGS (5)
  1. AZATHIOPRINE. [Concomitant]
     Active Substance: AZATHIOPRINE
     Dosage: 150 MG, MONTHLY (1 IN 1 M)
     Route: 048
     Dates: start: 2017
  2. XELJANZ XR [Suspect]
     Active Substance: TOFACITINIB CITRATE
     Dosage: 11 MG, DAILY
     Route: 048
     Dates: start: 20170806
  3. AZATHIOPRINE. [Concomitant]
     Active Substance: AZATHIOPRINE
     Dosage: 150 MG, 1X/DAY
     Route: 048
     Dates: start: 2017
  4. XELJANZ XR [Suspect]
     Active Substance: TOFACITINIB CITRATE
     Indication: RHEUMATOID ARTHRITIS
     Dosage: 11 MG, 1X/DAY
     Route: 048
  5. CIMZIA [Concomitant]
     Active Substance: CERTOLIZUMAB PEGOL
     Dosage: UNK

REACTIONS (13)
  - Skin injury [Unknown]
  - Retinal detachment [Unknown]
  - Cataract [Unknown]
  - Malaise [Unknown]
  - Memory impairment [Unknown]
  - Retinal injury [Unknown]
  - Generalised oedema [Unknown]
  - Facial bones fracture [Unknown]
  - Fall [Unknown]
  - Weight increased [Unknown]
  - Concussion [Unknown]
  - Lip injury [Unknown]
  - Tooth fracture [Unknown]

NARRATIVE: CASE EVENT DATE: 2016
